FAERS Safety Report 4465950-9 (Version None)
Quarter: 2004Q3

REPORT INFORMATION
  Report Type: 
  Country: None (occurrence: None)
  Receive Date: 20040930
  Receipt Date: 20040915
  Transmission Date: 20050211
  Serious: Yes (Hospitalization)
  Sender: FDA-Public Use
  Company Number: 2004-0007386

PATIENT
  Age: 35 Year
  Sex: Male
  Weight: 43 kg

DRUGS (7)
  1. EMTRICITABINE (EMTRICITABINE) [Suspect]
     Indication: HIV INFECTION
     Dosage: 200 MG, ORAL
     Route: 048
     Dates: start: 20040720, end: 20040804
  2. EMTRICITABINE (EMTRICITABINE) [Suspect]
     Indication: HIV INFECTION
     Dosage: 200 MG, ORAL
     Route: 048
     Dates: start: 20040811
  3. TENOFOVIR DISOPROXIL FUMARATE [Suspect]
     Indication: HIV INFECTION
     Dosage: 300 MG, ORAL
     Route: 048
     Dates: start: 20040720, end: 20040804
  4. TENOFOVIR DISOPROXIL FUMARATE [Suspect]
     Indication: HIV INFECTION
     Dosage: 300 MG, ORAL
     Route: 048
     Dates: start: 20040811
  5. STOCRIN (EFAVIRENZ) [Suspect]
     Indication: HIV INFECTION
     Dosage: 600 MG, ORAL
     Route: 048
     Dates: start: 20040720, end: 20040804
  6. STOCRIN (EFAVIRENZ) [Suspect]
     Indication: HIV INFECTION
     Dosage: 600 MG, ORAL
     Route: 048
     Dates: start: 20040811, end: 20040820
  7. BACTRIM [Concomitant]

REACTIONS (8)
  - ASTHENIA [None]
  - BLOOD PRESSURE SYSTOLIC DECREASED [None]
  - CACHEXIA [None]
  - DIARRHOEA [None]
  - DIZZINESS [None]
  - HAEMOGLOBIN DECREASED [None]
  - PNEUMONIA [None]
  - VOMITING [None]
